FAERS Safety Report 14187856 (Version 1)
Quarter: 2017Q4

REPORT INFORMATION
  Report Type: Spontaneous
  Country: US (occurrence: US)
  Receive Date: 20171114
  Receipt Date: 20171114
  Transmission Date: 20180321
  Serious: Yes (Life-Threatening, Hospitalization, Disabling)
  Sender: FDA-Public Use
  Company Number: US-LEADIANT BIOSCIENCES INC-2017STPI000318

PATIENT
  Age: 28 Year
  Sex: Male

DRUGS (1)
  1. ADAGEN [Suspect]
     Active Substance: PEGADEMASE BOVINE
     Indication: COMBINED IMMUNODEFICIENCY
     Dosage: 250 U/ML, BIW
     Route: 030
     Dates: start: 2010

REACTIONS (1)
  - B-cell lymphoma [Unknown]

NARRATIVE: CASE EVENT DATE: 2016
